FAERS Safety Report 23500506 (Version 1)
Quarter: 2024Q1

REPORT INFORMATION
  Report Type: Spontaneous
  Country: IT (occurrence: IT)
  Receive Date: 20240208
  Receipt Date: 20240208
  Transmission Date: 20240410
  Serious: Yes (Other)
  Sender: FDA-Public Use
  Company Number: None

PATIENT
  Age: 60 Year
  Sex: Male
  Weight: 55 kg

DRUGS (2)
  1. GEMCITABINE [Suspect]
     Active Substance: GEMCITABINE
     Indication: Lung cancer metastatic
     Dosage: START OF THERAPY 11/08/2023 - THERAPY EVERY 21 DAYS, D1 AND D8 - 11/08 I CYCLE G1 - 10/11 IV CYCL...
     Route: 042
     Dates: start: 20230811, end: 20231110
  2. CISPLATIN [Suspect]
     Active Substance: CISPLATIN
     Indication: Lung cancer metastatic
     Dosage: START OF THERAPY 11/08/2023 - THERAPY EVERY 21 DAYS, ON DAY 1 - 11/08 1ST CYCLE G1 - 03/11 4TH CY...
     Route: 042
     Dates: start: 20230811, end: 20231103

REACTIONS (3)
  - Leukopenia [Recovering/Resolving]
  - Haemoglobin decreased [Recovering/Resolving]
  - Neutropenia [Recovering/Resolving]

NARRATIVE: CASE EVENT DATE: 20230904
